FAERS Safety Report 9694824 (Version 4)
Quarter: 2023Q2

REPORT INFORMATION
  Report Type: Report from Study
  Country: CA (occurrence: CA)
  Receive Date: 20131119
  Receipt Date: 20230403
  Transmission Date: 20230721
  Serious: Yes (Hospitalization, Other)
  Sender: FDA-Public Use
  Company Number: CA-AMGEN-CANSP2013081063

PATIENT
  Age: 39 Year
  Sex: Female

DRUGS (1)
  1. ENBREL [Suspect]
     Active Substance: ETANERCEPT
     Indication: Ankylosing spondylitis
     Dosage: 50 MILLIGRAM, QWK
     Route: 065
     Dates: start: 20130428

REACTIONS (15)
  - Wound dehiscence [Recovering/Resolving]
  - Wound secretion [Unknown]
  - Postoperative wound infection [Recovered/Resolved]
  - Weight increased [Recovered/Resolved]
  - Abdominal pain [Unknown]
  - Sacroiliac fusion [Unknown]
  - Arthritis [Unknown]
  - Ovarian cyst [Unknown]
  - Back pain [Unknown]
  - Arthralgia [Unknown]
  - Fatigue [Unknown]
  - Musculoskeletal stiffness [Unknown]
  - Mobility decreased [Unknown]
  - Wound complication [Unknown]
  - Illness [Unknown]

NARRATIVE: CASE EVENT DATE: 20131101
